FAERS Safety Report 25929174 (Version 1)
Quarter: 2025Q4

REPORT INFORMATION
  Report Type: Spontaneous
  Country: US (occurrence: US)
  Receive Date: 20251016
  Receipt Date: 20251016
  Transmission Date: 20260118
  Serious: No
  Sender: Kenvue
  Company Number: US-KENVUE-20250912497

PATIENT
  Age: 47 Year
  Sex: Male

DRUGS (1)
  1. MENS ROGAINE EXTRA STRENGTH [Suspect]
     Active Substance: MINOXIDIL
     Indication: Product used for unknown indication
     Dosage: 1 MILLILITER, TWICE A DAY (WITH A MEASURING CUP 1ML)
     Route: 061
     Dates: start: 20250801, end: 2025

REACTIONS (1)
  - Application site hypersensitivity [Recovering/Resolving]

NARRATIVE: CASE EVENT DATE: 20250811
